FAERS Safety Report 20223673 (Version 3)
Quarter: 2022Q3

REPORT INFORMATION
  Report Type: Spontaneous
  Country: FR (occurrence: FR)
  Receive Date: 20211223
  Receipt Date: 20220906
  Transmission Date: 20221027
  Serious: Yes (Death, Life-Threatening, Hospitalization, Other)
  Sender: FDA-Public Use
  Company Number: FR-Accord-247861

PATIENT
  Age: 58 Year
  Sex: Male

DRUGS (12)
  1. MYCOPHENOLATE MOFETIL [Suspect]
     Active Substance: MYCOPHENOLATE MOFETIL
     Indication: Immunosuppression
  2. TACROLIMUS [Suspect]
     Active Substance: TACROLIMUS
     Indication: Immunosuppression
  3. PREDNISONE [Suspect]
     Active Substance: PREDNISONE
     Indication: Immunosuppressant drug therapy
  4. COTRIMOXAZOLE [Suspect]
     Active Substance: SULFAMETHOXAZOLE\TRIMETHOPRIM
     Indication: Antibiotic therapy
  5. ASPIRIN [Concomitant]
     Active Substance: ASPIRIN
  6. CLOPIDOGREL [Concomitant]
     Active Substance: CLOPIDOGREL BISULFATE
  7. NEBIVOLOL [Concomitant]
     Active Substance: NEBIVOLOL
  8. URAPIDIL [Concomitant]
     Active Substance: URAPIDIL
  9. INSULIN GLARGINE [Concomitant]
     Active Substance: INSULIN GLARGINE
     Indication: Diabetes mellitus
  10. ROSUVASTATIN [Concomitant]
     Active Substance: ROSUVASTATIN
  11. VALGANCICLOVIR [Concomitant]
     Active Substance: VALGANCICLOVIR
  12. VANCOMYCIN [Concomitant]
     Active Substance: VANCOMYCIN
     Indication: Staphylococcal infection
     Dates: start: 2018

REACTIONS (8)
  - Aspergillus infection [Fatal]
  - Staphylococcal infection [Unknown]
  - Abscess [Fatal]
  - Endocarditis [Fatal]
  - Septic shock [Fatal]
  - Acute kidney injury [Fatal]
  - Delirium [Fatal]
  - Hyponatraemia [Fatal]

NARRATIVE: CASE EVENT DATE: 20180101
